FAERS Safety Report 16286505 (Version 1)
Quarter: 2019Q2

REPORT INFORMATION
  Report Type: Spontaneous
  Country: US (occurrence: US)
  Receive Date: 20190508
  Receipt Date: 20190508
  Transmission Date: 20190711
  Serious: No
  Sender: FDA-Public Use
  Company Number: US-MALLINCKRODT-T201801596

PATIENT
  Sex: Male

DRUGS (1)
  1. NALTREXONE [Suspect]
     Active Substance: NALTREXONE
     Indication: ALCOHOLISM
     Dosage: 10 MG DAILY FOR FIRST 10 DAYS, THEN 1 TABLET EVERY OTHER DAY
     Route: 048

REACTIONS (1)
  - Intraocular pressure increased [Unknown]
